FAERS Safety Report 16735155 (Version 1)
Quarter: 2019Q3

REPORT INFORMATION
  Report Type: Spontaneous
  Country: JP (occurrence: JP)
  Receive Date: 20190823
  Receipt Date: 20190823
  Transmission Date: 20191005
  Serious: Yes (Hospitalization)
  Sender: FDA-Public Use
  Company Number: JP-ASTRAZENECA-2019SE95176

PATIENT
  Age: 60 Year
  Sex: Male

DRUGS (6)
  1. LIMAS [Concomitant]
     Active Substance: LITHIUM CARBONATE
  2. SUVOREXANT. [Concomitant]
     Active Substance: SUVOREXANT
  3. SILECE [Concomitant]
     Active Substance: FLUNITRAZEPAM
  4. DEPAKENE-R [Concomitant]
     Active Substance: VALPROATE SODIUM
  5. BIPRESSO (QUETIAPINE FUMARATE) [Suspect]
     Active Substance: QUETIAPINE FUMARATE
     Indication: BIPOLAR DISORDER
     Route: 048
     Dates: start: 20181108, end: 20190509
  6. LAMICTAL [Concomitant]
     Active Substance: LAMOTRIGINE

REACTIONS (1)
  - Mania [Recovered/Resolved]

NARRATIVE: CASE EVENT DATE: 20190509
